FAERS Safety Report 4807509-7 (Version None)
Quarter: 2005Q4

REPORT INFORMATION
  Report Type: 
  Country: None (occurrence: None)
  Receive Date: 20051020
  Receipt Date: 20051003
  Transmission Date: 20060501
  Serious: Yes (Hospitalization)
  Sender: FDA-Public Use
  Company Number: TRP_0567_2005

PATIENT
  Age: 41 Year
  Sex: Male
  Weight: 97.0698 kg

DRUGS (6)
  1. RIBASPHERE [Suspect]
     Indication: HEPATITIS C
     Dosage: DF PO
     Route: 048
     Dates: start: 20050520
  2. PEG-INTRON/PEGINTERFERON ALFA-2B/SCHERING-PLOUGH / REDIPEN [Suspect]
     Indication: HEPATITIS C
     Dosage: DF SC
     Route: 058
     Dates: start: 20050520
  3. ALTACE [Concomitant]
  4. GLIPIZIDE [Concomitant]
  5. LANTUS [Concomitant]
  6. NEXIUM [Concomitant]

REACTIONS (1)
  - CELLULITIS [None]
